FAERS Safety Report 6671013-4 (Version None)
Quarter: 2010Q2

REPORT INFORMATION
  Report Type: 
  Country: None (occurrence: None)
  Receive Date: 20100407
  Receipt Date: 20100329
  Transmission Date: 20101027
  Serious: Yes (Hospitalization)
  Sender: FDA-Public Use
  Company Number: PHHY2010US20609

PATIENT
  Sex: Female
  Weight: 91.61 kg

DRUGS (2)
  1. EXJADE [Suspect]
     Indication: SICKLE CELL ANAEMIA
     Dosage: 1750 MG DAILY
     Route: 048
     Dates: start: 20091029
  2. EXJADE [Suspect]
     Dosage: UNK

REACTIONS (3)
  - CARDIAC DISORDER [None]
  - HEART VALVE INCOMPETENCE [None]
  - MASS [None]
